FAERS Safety Report 22141507 (Version 1)
Quarter: 2023Q1

REPORT INFORMATION
  Report Type: Spontaneous
  Country: GB (occurrence: GB)
  Receive Date: 20230327
  Receipt Date: 20230327
  Transmission Date: 20230418
  Serious: Yes (Other)
  Sender: FDA-Public Use
  Company Number: None

PATIENT
  Age: 42 Year
  Sex: Male

DRUGS (1)
  1. CUTAQUIG [Suspect]
     Active Substance: HUMAN IMMUNOGLOBULIN G
     Indication: Motor neurone disease
     Dosage: 4 X 1 G VIALS AND 3 X 8 G AT THE SAME TIME
     Route: 058

REACTIONS (7)
  - Gastritis [Unknown]
  - Burning sensation [Unknown]
  - Abdominal mass [Unknown]
  - Limb mass [Unknown]
  - Pain [Unknown]
  - Peripheral swelling [Unknown]
  - Abdominal distension [Unknown]

NARRATIVE: CASE EVENT DATE: 20230117
